FAERS Safety Report 9115958 (Version 3)
Quarter: 2013Q2

REPORT INFORMATION
  Report Type: Spontaneous
  Country: US (occurrence: US)
  Receive Date: 20130225
  Receipt Date: 20130409
  Transmission Date: 20140414
  Serious: Yes (Hospitalization, Other)
  Sender: FDA-Public Use
  Company Number: US-BAXTER-2013BAX005628

PATIENT
  Age: 58 Year
  Sex: Male

DRUGS (2)
  1. DIANEAL LOW CALCIUM [Suspect]
     Indication: PERITONEAL DIALYSIS
     Route: 033
     Dates: start: 201005
  2. DIANEAL LOW CALCIUM [Suspect]
     Route: 033
     Dates: start: 201005

REACTIONS (7)
  - Gangrene [Not Recovered/Not Resolved]
  - Sepsis [Not Recovered/Not Resolved]
  - Aphagia [Not Recovered/Not Resolved]
  - Condition aggravated [Unknown]
  - White blood cell count increased [Unknown]
  - Dehydration [Not Recovered/Not Resolved]
  - Hypotension [Not Recovered/Not Resolved]
